FAERS Safety Report 16130503 (Version 1)
Quarter: 2019Q1

REPORT INFORMATION
  Report Type: Spontaneous
  Country: CH (occurrence: CH)
  Receive Date: 20190328
  Receipt Date: 20190328
  Transmission Date: 20190418
  Serious: Yes (Hospitalization, Other)
  Sender: FDA-Public Use
  Company Number: CH-PFIZER INC-2019132321

PATIENT
  Age: 61 Year
  Sex: Male

DRUGS (5)
  1. SEQUASE [Suspect]
     Active Substance: QUETIAPINE FUMARATE
     Dosage: UNK
  2. EUTHYROX [Concomitant]
     Active Substance: LEVOTHYROXINE SODIUM
     Dosage: UNK
  3. PLAVIX [Concomitant]
     Active Substance: CLOPIDOGREL BISULFATE
     Dosage: UNK
  4. TEMESTA (LORAZEPAM) [Suspect]
     Active Substance: LORAZEPAM
     Dosage: UNK
  5. LITHIOFOR [Suspect]
     Active Substance: LITHIUM SULFATE
     Dosage: UNK

REACTIONS (4)
  - Acute abdomen [Unknown]
  - Ileus [None]
  - Blood creatinine increased [Unknown]
  - Antipsychotic drug level above therapeutic [Unknown]

NARRATIVE: CASE EVENT DATE: 201903
